FAERS Safety Report 10177048 (Version 9)
Quarter: 2014Q4

REPORT INFORMATION
  Report Type: Spontaneous
  Country: GB (occurrence: GB)
  Receive Date: 20140516
  Receipt Date: 20141015
  Transmission Date: 20150528
  Serious: Yes (Hospitalization, Other)
  Sender: FDA-Public Use
  Company Number: GB-009507513-1306GBR004474

PATIENT
  Age: 35 Year
  Sex: Male

DRUGS (2)
  1. PROPECIA [Suspect]
     Active Substance: FINASTERIDE
     Indication: ALOPECIA
     Dosage: 1 MG
     Route: 048
     Dates: start: 201008, end: 201011
  2. PROPECIA [Suspect]
     Active Substance: FINASTERIDE
     Dosage: 1 MG
     Route: 048
     Dates: start: 20130221, end: 20130502

REACTIONS (42)
  - Muscle atrophy [Not Recovered/Not Resolved]
  - Decreased appetite [Not Recovered/Not Resolved]
  - Penile vascular disorder [Not Recovered/Not Resolved]
  - Thinking abnormal [Recovering/Resolving]
  - Suicidal ideation [Recovering/Resolving]
  - Muscle spasms [Not Recovered/Not Resolved]
  - Hormone level abnormal [Unknown]
  - Suicidal ideation [Unknown]
  - Genital hypoaesthesia [Not Recovered/Not Resolved]
  - Genital disorder male [Not Recovered/Not Resolved]
  - Amnesia [Not Recovered/Not Resolved]
  - Dyspepsia [Not Recovered/Not Resolved]
  - Confusional state [Not Recovered/Not Resolved]
  - Loss of bladder sensation [Unknown]
  - Suicide attempt [Unknown]
  - Asthenia [Not Recovered/Not Resolved]
  - Anxiety [Not Recovered/Not Resolved]
  - Genital rash [Not Recovered/Not Resolved]
  - Suicidal ideation [Unknown]
  - Insomnia [Not Recovered/Not Resolved]
  - Sexual dysfunction [Not Recovered/Not Resolved]
  - Feeling cold [Not Recovered/Not Resolved]
  - Panic attack [Not Recovered/Not Resolved]
  - Sexual dysfunction [Unknown]
  - Memory impairment [Not Recovered/Not Resolved]
  - Blood testosterone decreased [Unknown]
  - Mental disorder [Recovering/Resolving]
  - Skin atrophy [Not Recovered/Not Resolved]
  - Emotional disorder [Not Recovered/Not Resolved]
  - Dysarthria [Not Recovered/Not Resolved]
  - Diarrhoea [Not Recovered/Not Resolved]
  - Erectile dysfunction [Not Recovered/Not Resolved]
  - Depression [Unknown]
  - Abnormal behaviour [Unknown]
  - Genital rash [Not Recovered/Not Resolved]
  - Penis disorder [Not Recovered/Not Resolved]
  - Sensory loss [Not Recovered/Not Resolved]
  - Abdominal pain [Not Recovered/Not Resolved]
  - Infertility [Recovered/Resolved]
  - Decreased interest [Recovering/Resolving]
  - Depression [Unknown]
  - Genital disorder male [Not Recovered/Not Resolved]

NARRATIVE: CASE EVENT DATE: 2010
